FAERS Safety Report 14795529 (Version 1)
Quarter: 2018Q2

REPORT INFORMATION
  Report Type: Spontaneous
  Country: JP (occurrence: JP)
  Receive Date: 20180423
  Receipt Date: 20180423
  Transmission Date: 20180711
  Serious: Yes (Other)
  Sender: FDA-Public Use
  Company Number: JP-ANIPHARMA-2018-JP-000054

PATIENT
  Age: 65 Year
  Sex: Male

DRUGS (4)
  1. TOPIRAMATE. [Suspect]
     Active Substance: TOPIRAMATE
     Dosage: 500 MG/DAY
  2. PHENYTOIN SODIUM (NON-SPECIFIC) [Suspect]
     Active Substance: PHENYTOIN SODIUM
     Dosage: 300 MG/DAY
  3. LEVETIRACETAM. [Suspect]
     Active Substance: LEVETIRACETAM
     Dosage: 3000 MG/DAY
  4. PERAMPANEL [Suspect]
     Active Substance: PERAMPANEL
     Dosage: 8 MG/DAY

REACTIONS (1)
  - Drug reaction with eosinophilia and systemic symptoms [Unknown]
